FAERS Safety Report 4438146-4 (Version None)
Quarter: 2004Q3

REPORT INFORMATION
  Report Type: 
  Country: None (occurrence: None)
  Receive Date: 20040831
  Receipt Date: 20040602
  Transmission Date: 20050211
  Serious: No
  Sender: FDA-Public Use
  Company Number: US-GLAXOSMITHKLINE-A0513012A

PATIENT
  Sex: Female

DRUGS (6)
  1. WELLBUTRIN XL [Suspect]
     Indication: ILL-DEFINED DISORDER
     Route: 048
  2. DIOVAN [Concomitant]
  3. PROCARDIA [Concomitant]
  4. NEXIUM [Concomitant]
  5. ATENOLOL [Concomitant]
  6. FLONASE [Concomitant]

REACTIONS (2)
  - OEDEMA PERIPHERAL [None]
  - PAIN [None]
